FAERS Safety Report 7911775-9 (Version None)
Quarter: 2011Q4

REPORT INFORMATION
  Report Type: 
  Country: None (occurrence: None)
  Receive Date: 20111114
  Receipt Date: 20111114
  Transmission Date: 20120403
  Serious: Yes (Death, Life-Threatening, Hospitalization, Disabling, Congenital Anomaly, Other)
  Sender: FDA-Public Use
  Company Number: None

PATIENT
  Age: 36 Year
  Sex: Female
  Weight: 62.595 kg

DRUGS (1)
  1. LOTRONEX [Suspect]
     Indication: DIARRHOEA
     Dosage: 1 MG
     Route: 048

REACTIONS (3)
  - VOMITING [None]
  - INTESTINAL PERFORATION [None]
  - GASTROINTESTINAL INFECTION [None]
